FAERS Safety Report 4808119-8 (Version None)
Quarter: 2005Q4

REPORT INFORMATION
  Report Type: 
  Country: None (occurrence: None)
  Receive Date: 20051021
  Receipt Date: 20051007
  Transmission Date: 20060501
  Serious: Yes (Hospitalization, Other)
  Sender: FDA-Public Use
  Company Number: A-US2005-10642

PATIENT
  Age: 71 Year
  Sex: Male

DRUGS (9)
  1. TRACLEER [Suspect]
     Indication: PULMONARY HYPERTENSION
     Dosage: 62.5 MG, BID, ORAL
     Route: 048
     Dates: start: 20050105, end: 20050909
  2. THEOPHYLLIN - SLOW RELEASE  STADA  (THEOPHYLLINE) [Concomitant]
  3. NYSTATIN [Concomitant]
  4. ZANTAC [Concomitant]
  5. PREDNISONE [Concomitant]
  6. ASPIRIN [Suspect]
  7. PAXIL [Concomitant]
  8. LASIX [Concomitant]
  9. CRESTOR [Concomitant]

REACTIONS (3)
  - ALANINE AMINOTRANSFERASE INCREASED [None]
  - ASPARTATE AMINOTRANSFERASE INCREASED [None]
  - RESPIRATORY FAILURE [None]
